FAERS Safety Report 13042073 (Version 8)
Quarter: 2021Q1

REPORT INFORMATION
  Report Type: Spontaneous
  Country: US (occurrence: US)
  Receive Date: 20161219
  Receipt Date: 20210325
  Transmission Date: 20210419
  Serious: No
  Sender: FDA-Public Use
  Company Number: US-PFIZER INC-2016579845

PATIENT
  Age: 54 Year
  Sex: Female

DRUGS (4)
  1. LYRICA [Suspect]
     Active Substance: PREGABALIN
     Dosage: 200 MG, 3X/DAY
  2. LYRICA [Suspect]
     Active Substance: PREGABALIN
     Indication: MULTIPLE SCLEROSIS
     Dosage: 225 MG, 2X/DAY
  3. LYRICA [Suspect]
     Active Substance: PREGABALIN
     Indication: NEURALGIA
     Dosage: 200 MG, 2X/DAY
  4. LYRICA [Suspect]
     Active Substance: PREGABALIN
     Dosage: 600 MG, DAILY (200 MG, TAKE 1 CAPSULE BY MOUTH EVERY MORNING AND 2 CAPSULES EVERY EVENING)
     Route: 048

REACTIONS (6)
  - Drug ineffective [Unknown]
  - Product prescribing error [Unknown]
  - Anxiety [Unknown]
  - Bradyphrenia [Unknown]
  - Memory impairment [Unknown]
  - Daydreaming [Unknown]
